FAERS Safety Report 6537453-9 (Version None)
Quarter: 2010Q1

REPORT INFORMATION
  Report Type: 
  Country: None (occurrence: None)
  Receive Date: 20100114
  Receipt Date: 20100106
  Transmission Date: 20100710
  Serious: Yes (Other)
  Sender: FDA-Public Use
  Company Number: PHEH2009US18577

PATIENT
  Sex: Female
  Weight: 69.09 kg

DRUGS (6)
  1. GLEEVEC [Suspect]
     Indication: CHROMOSOME ANALYSIS ABNORMAL
     Dosage: 400 MG/DAY
     Route: 048
  2. GLEEVEC [Suspect]
     Indication: CHRONIC MYELOID LEUKAEMIA
     Dosage: 200 MG
  3. GLEEVEC [Suspect]
     Dosage: 300 MG/DAY
     Route: 048
     Dates: start: 20050501, end: 20091202
  4. AMBIEN [Concomitant]
     Indication: INSOMNIA
  5. TRIAMTERENE [Concomitant]
     Indication: FLUID RETENTION
  6. VITAMINS [Concomitant]

REACTIONS (11)
  - BLOOD COUNT ABNORMAL [None]
  - DRUG INTOLERANCE [None]
  - EYE SWELLING [None]
  - FLUID RETENTION [None]
  - GLAUCOMA [None]
  - INSOMNIA [None]
  - LIVER DISORDER [None]
  - NEUTROPHIL COUNT DECREASED [None]
  - PLATELET COUNT DECREASED [None]
  - RED BLOOD CELL COUNT DECREASED [None]
  - WHITE BLOOD CELL COUNT DECREASED [None]
